FAERS Safety Report 9512282 (Version 1)
Quarter: 2013Q3

REPORT INFORMATION
  Report Type: Spontaneous
  Country: US (occurrence: US)
  Receive Date: 20130910
  Receipt Date: 20130910
  Transmission Date: 20140515
  Serious: No
  Sender: FDA-Public Use
  Company Number: -SAAVPROD-BMS13646823

PATIENT
  Age: 68 Year
  Sex: Female
  Weight: 99.77 kg

DRUGS (11)
  1. AVAPRO [Suspect]
     Indication: BLOOD PRESSURE INCREASED
     Dates: start: 2006
  2. BYETTA [Suspect]
     Indication: TYPE 2 DIABETES MELLITUS
     Dosage: 5MCG;BID;SC 2006-2006
     Route: 058
     Dates: start: 2006
  3. METFORMIN HCL [Suspect]
     Indication: TYPE 2 DIABETES MELLITUS
     Dates: start: 2006
  4. ACTOS [Concomitant]
     Dates: start: 2006
  5. BENICAR [Concomitant]
     Dates: start: 2006
  6. VERAPMIL [Concomitant]
  7. FUROSEMIDE [Concomitant]
  8. TOPROL XL [Concomitant]
  9. PLAVIX [Concomitant]
  10. VYTORIN [Concomitant]
  11. CARDURA [Concomitant]

REACTIONS (2)
  - Renal function test abnormal [Unknown]
  - Blood glucose increased [Unknown]
